FAERS Safety Report 5478093-2 (Version None)
Quarter: 2007Q4

REPORT INFORMATION
  Report Type: 
  Country: None (occurrence: None)
  Receive Date: 20071005
  Receipt Date: 20070924
  Transmission Date: 20080405
  Serious: Yes (Other)
  Sender: FDA-Public Use
  Company Number: DE-JNJFOC-20070904459

PATIENT
  Sex: Male
  Weight: 3.95 kg

DRUGS (9)
  1. TOPAMAX [Suspect]
     Indication: DRUG EXPOSURE DURING PREGNANCY
  2. CIPRALEX [Suspect]
     Indication: DRUG EXPOSURE DURING PREGNANCY
  3. THYRONAJOD [Suspect]
     Indication: DRUG EXPOSURE DURING PREGNANCY
  4. SINGULAIR [Suspect]
     Indication: DRUG EXPOSURE DURING PREGNANCY
  5. BEROTEC [Suspect]
     Indication: DRUG EXPOSURE DURING PREGNANCY
  6. SYMBICORT [Suspect]
     Indication: DRUG EXPOSURE DURING PREGNANCY
  7. IBUPROFEN [Suspect]
     Indication: DRUG EXPOSURE DURING PREGNANCY
  8. PRESINOL [Suspect]
     Indication: DRUG EXPOSURE DURING PREGNANCY
  9. FOLSAN [Suspect]
     Indication: DRUG EXPOSURE DURING PREGNANCY

REACTIONS (2)
  - APRAXIA [None]
  - DRUG EXPOSURE DURING PREGNANCY [None]
